FAERS Safety Report 11778385 (Version 2)
Quarter: 2015Q4

REPORT INFORMATION
  Report Type: Spontaneous
  Country: US (occurrence: US)
  Receive Date: 20151125
  Receipt Date: 20151204
  Transmission Date: 20160304
  Serious: No
  Sender: FDA-Public Use
  Company Number: US-VERTEX PHARMACEUTICALS-2015-005369

PATIENT
  Sex: Male

DRUGS (14)
  1. MIRALAX [Concomitant]
     Active Substance: POLYETHYLENE GLYCOL 3350
  2. ADVAIR HFA [Concomitant]
     Active Substance: FLUTICASONE PROPIONATE\SALMETEROL XINAFOATE
  3. VITAMIN D3 [Concomitant]
     Active Substance: CHOLECALCIFEROL
  4. TOBI [Concomitant]
     Active Substance: TOBRAMYCIN
  5. ZYVOX [Concomitant]
     Active Substance: LINEZOLID
  6. ALBUTEROL. [Concomitant]
     Active Substance: ALBUTEROL
  7. ZENPEP [Concomitant]
     Active Substance: PANCRELIPASE\PANCRELIPASE AMYLASE\PANCRELIPASE LIPASE\PANCRELIPASE PROTEASE
  8. ORKAMBI [Suspect]
     Active Substance: IVACAFTOR\LUMACAFTOR
     Indication: CYSTIC FIBROSIS
     Dosage: 400/250MG, BID
     Route: 048
     Dates: start: 20150926
  9. RANITIDINE [Concomitant]
     Active Substance: RANITIDINE\RANITIDINE HYDROCHLORIDE
  10. NACL [Concomitant]
     Active Substance: SODIUM CHLORIDE
  11. AMIKACIN [Concomitant]
     Active Substance: AMIKACIN
  12. NOVOLOG [Concomitant]
     Active Substance: INSULIN ASPART
  13. PULMOZYME [Concomitant]
     Active Substance: DORNASE ALFA
  14. SINGULAIR [Concomitant]
     Active Substance: MONTELUKAST SODIUM

REACTIONS (1)
  - Eye disorder [Unknown]
